FAERS Safety Report 10359079 (Version 1)
Quarter: 2014Q3

REPORT INFORMATION
  Report Type: Spontaneous
  Country: US (occurrence: None)
  Receive Date: 20140731
  Receipt Date: 20140731
  Transmission Date: 20150326
  Serious: No
  Sender: FDA-Public Use
  Company Number: None

PATIENT
  Age: 12 Year
  Sex: Female
  Weight: 68.95 kg

DRUGS (1)
  1. POTIGA [Suspect]
     Active Substance: EZOGABINE
     Indication: EPILEPSY
     Route: 048
     Dates: start: 20140601, end: 20140630

REACTIONS (3)
  - Skin exfoliation [None]
  - Therapy cessation [None]
  - Ataxia [None]

NARRATIVE: CASE EVENT DATE: 20140630
